FAERS Safety Report 15396920 (Version 1)
Quarter: 2018Q4

REPORT INFORMATION
  Report Type: Spontaneous
  Country: FR (occurrence: FR)
  Receive Date: 20180918
  Receipt Date: 20180918
  Transmission Date: 20190204
  Serious: Yes (Hospitalization)
  Sender: FDA-Public Use
  Company Number: FR-PFIZER INC-2018370240

PATIENT
  Age: 88 Year
  Sex: Female

DRUGS (4)
  1. AMLOR [Suspect]
     Active Substance: AMLODIPINE BESYLATE
     Indication: HYPERTENSION
     Dosage: 5 MG, 1X/DAY
     Route: 048
     Dates: start: 20180612, end: 20180622
  2. EFFEXOR [Suspect]
     Active Substance: VENLAFAXINE HYDROCHLORIDE
     Indication: DEPRESSION
     Dosage: 75 MG, 1X/DAY
     Route: 048
     Dates: start: 20180612, end: 20180622
  3. LEXOMIL [Suspect]
     Active Substance: BROMAZEPAM
     Indication: DEPRESSION
     Dosage: 3 MG, 1X/DAY
     Route: 048
     Dates: start: 20180612, end: 20180622
  4. COLCHIMAX [COLCHICINE;PAPAVER SOMNIFERUM POWDER;TIEMONIUM METHYLSULPHA [Suspect]
     Active Substance: COLCHICINE\OPIUM\TIEMONIUM METHYLSULFATE
     Indication: GOUT
     Dosage: 1 MG, 1X/DAY
     Route: 048
     Dates: start: 20180613, end: 20180622

REACTIONS (3)
  - Rash [Unknown]
  - Confusional state [Recovering/Resolving]
  - Face oedema [Unknown]

NARRATIVE: CASE EVENT DATE: 20180617
